FAERS Safety Report 8551433-3 (Version None)
Quarter: 2012Q3

REPORT INFORMATION
  Report Type: 
  Country: None (occurrence: None)
  Receive Date: 20120723
  Receipt Date: 20120723
  Transmission Date: 20120928
  Serious: Yes (Hospitalization)
  Sender: FDA-Public Use
  Company Number: None

PATIENT
  Sex: Female
  Weight: 56.9718 kg

DRUGS (1)
  1. VICTRELIS [Suspect]
     Indication: HEPATITIS C
     Dosage: 4 CAPSULES THREE TIMES DAILY PO
     Route: 048
     Dates: start: 20120608, end: 20120611

REACTIONS (8)
  - ASTHENIA [None]
  - DYSPNOEA [None]
  - HYPONATRAEMIA [None]
  - ABDOMINAL PAIN [None]
  - DIZZINESS [None]
  - VOMITING [None]
  - LOSS OF CONSCIOUSNESS [None]
  - HEADACHE [None]
